FAERS Safety Report 21105718 (Version 1)
Quarter: 2022Q3

REPORT INFORMATION
  Report Type: Spontaneous
  Country: CN (occurrence: CN)
  Receive Date: 20220720
  Receipt Date: 20220720
  Transmission Date: 20221026
  Serious: Yes (Life-Threatening)
  Sender: FDA-Public Use
  Company Number: CN-PFIZER INC-202200982743

PATIENT
  Age: 87 Year
  Sex: Female

DRUGS (5)
  1. TIGECYCLINE [Suspect]
     Active Substance: TIGECYCLINE
     Dosage: 100 MG, 2X/DAY
     Route: 042
     Dates: start: 20211109, end: 20211115
  2. SODIUM CHLORIDE [Concomitant]
     Active Substance: SODIUM CHLORIDE
     Dosage: 100 ML, 2X/DAY
     Route: 042
     Dates: start: 20211109, end: 20211115
  3. FOSFOMYCIN SODIUM [Concomitant]
     Active Substance: FOSFOMYCIN SODIUM
     Dosage: 8 G, 2X/DAY
     Route: 042
     Dates: start: 20211109, end: 20211114
  4. SODIUM CHLORIDE [Concomitant]
     Active Substance: SODIUM CHLORIDE
     Dosage: 100 ML, 2X/DAY
     Route: 042
     Dates: start: 20211109, end: 20211114
  5. DEXTROSE [Concomitant]
     Active Substance: DEXTROSE
     Dosage: 100 ML, 3X/DAY
     Route: 042
     Dates: start: 20211115, end: 20211116

REACTIONS (8)
  - Blood fibrinogen decreased [Unknown]
  - Prothrombin time prolonged [Unknown]
  - International normalised ratio increased [Unknown]
  - Fibrin D dimer increased [Unknown]
  - Sinus tachycardia [Unknown]
  - Electrocardiogram ST segment abnormal [Unknown]
  - Electrocardiogram T wave abnormal [Unknown]
  - Electrocardiogram QT prolonged [Unknown]

NARRATIVE: CASE EVENT DATE: 20211115
